FAERS Safety Report 6533209-1 (Version None)
Quarter: 2010Q1

REPORT INFORMATION
  Report Type: 
  Country: None (occurrence: None)
  Receive Date: 20100111
  Receipt Date: 20100104
  Transmission Date: 20100710
  Serious: Yes (Other)
  Sender: FDA-Public Use
  Company Number: US-SANOFI-AVENTIS-2010SA000428

PATIENT
  Age: 78 Year
  Sex: Male

DRUGS (8)
  1. MULTAQ [Suspect]
     Indication: ATRIAL FIBRILLATION
     Route: 048
     Dates: start: 20091220
  2. WARFARIN SODIUM [Concomitant]
     Indication: THROMBOSIS PROPHYLAXIS
     Dosage: 1 TAB SUN, TUES, THURS, SAT; 1.5 TABS M, W, F
     Dates: start: 20050901
  3. AMLODIPINE [Concomitant]
     Indication: BLOOD PRESSURE
  4. FLOMAX [Concomitant]
     Dates: start: 20070101
  5. LORAZEPAM [Concomitant]
     Dosage: 1 TAB BID, PRN
     Dates: start: 20090701
  6. PREVACID [Concomitant]
     Dosage: 30MG QD, PRN
     Dates: start: 20040101
  7. CEPHALEXIN [Concomitant]
     Dosage: 1 TAB 4 HOURS BEFORE APPOINTMENT
     Dates: start: 20091203
  8. LOVASTATIN [Concomitant]
     Dates: start: 20080101

REACTIONS (7)
  - ATRIAL FIBRILLATION [None]
  - ERYTHEMA [None]
  - HEART RATE INCREASED [None]
  - JOINT SWELLING [None]
  - OEDEMA PERIPHERAL [None]
  - PALPITATIONS [None]
  - RASH PRURITIC [None]
